FAERS Safety Report 10238428 (Version 1)
Quarter: 2014Q2

REPORT INFORMATION
  Report Type: Spontaneous
  Country: GB (occurrence: GB)
  Receive Date: 20140616
  Receipt Date: 20140616
  Transmission Date: 20141212
  Serious: Yes (Death)
  Sender: FDA-Public Use
  Company Number: GB-TEVA-486796ISR

PATIENT
  Age: 54 Year
  Sex: Female

DRUGS (3)
  1. AZATHIOPRINE [Suspect]
     Route: 048
  2. PREDNISOLONE [Suspect]
     Route: 048
  3. ADOPORT [Suspect]
     Route: 048

REACTIONS (1)
  - Death [Fatal]
